FAERS Safety Report 5875730-5 (Version None)
Quarter: 2008Q3

REPORT INFORMATION
  Report Type: 
  Country: None (occurrence: None)
  Receive Date: 20080905
  Receipt Date: 20080825
  Transmission Date: 20090109
  Serious: Yes (Hospitalization)
  Sender: FDA-Public Use
  Company Number: SPV1-2008-01828

PATIENT
  Age: 14 Year
  Sex: Female
  Weight: 34.5 kg

DRUGS (3)
  1. LIALDA [Suspect]
     Indication: CROHN'S DISEASE
     Dosage: 3.6 G, 1X/DAY:QD, ORAL
     Route: 048
     Dates: start: 20080521
  2. REMICADE [Concomitant]
  3. IMURAN [Concomitant]

REACTIONS (5)
  - CONDITION AGGRAVATED [None]
  - CROHN'S DISEASE [None]
  - GASTRITIS [None]
  - LACTOSE INTOLERANCE [None]
  - OFF LABEL USE [None]
